FAERS Safety Report 6902515-0 (Version None)
Quarter: 2010Q3

REPORT INFORMATION
  Report Type: 
  Country: None (occurrence: None)
  Receive Date: 20100730
  Receipt Date: 20100717
  Transmission Date: 20110219
  Serious: Yes (Other)
  Sender: FDA-Public Use
  Company Number: 10-088-1

PATIENT
  Age: 46 Year
  Sex: Male

DRUGS (3)
  1. CEFAZOLIN [Suspect]
     Dosage: IV
     Route: 042
  2. RIFAMPICIN [Suspect]
     Dosage: 300 MG,BID
  3. CIPROFLOXACIN [Suspect]
     Indication: MYCOBACTERIUM ULCERANS INFECTION
     Dosage: 500 MG, BID

REACTIONS (3)
  - FAT NECROSIS [None]
  - MYCOBACTERIUM ULCERANS INFECTION [None]
  - NECROSIS [None]
